FAERS Safety Report 7407601-7 (Version None)
Quarter: 2011Q2

REPORT INFORMATION
  Report Type: 
  Country: None (occurrence: None)
  Receive Date: 20110406
  Receipt Date: 20110406
  Transmission Date: 20111010
  Serious: Yes (Hospitalization)
  Sender: FDA-Public Use
  Company Number: None

PATIENT
  Age: 61 Year
  Sex: Male
  Weight: 116.9 kg

DRUGS (1)
  1. PROPRANOLOL [Suspect]
     Indication: TREMOR
     Dosage: 60 MG EVERY DAY PO
     Route: 048
     Dates: start: 20101117, end: 20110202

REACTIONS (2)
  - CHRONIC OBSTRUCTIVE PULMONARY DISEASE [None]
  - CONDITION AGGRAVATED [None]
